FAERS Safety Report 4845548-0 (Version None)
Quarter: 2005Q4

REPORT INFORMATION
  Report Type: 
  Country: None (occurrence: None)
  Receive Date: 20051201
  Receipt Date: 20051116
  Transmission Date: 20060501
  Serious: Yes (Hospitalization)
  Sender: FDA-Public Use
  Company Number: 2005BI018461

PATIENT
  Age: 60 Year
  Sex: Male

DRUGS (12)
  1. AVONEX [Suspect]
     Indication: MULTIPLE SCLEROSIS
     Dosage: 30 UG; IM; 15 UG; IM; 30 UG;QW;IM
     Route: 030
     Dates: start: 20030513, end: 20030801
  2. AVONEX [Suspect]
     Indication: MULTIPLE SCLEROSIS
     Dosage: 30 UG; IM; 15 UG; IM; 30 UG;QW;IM
     Route: 030
     Dates: start: 20030804, end: 20040108
  3. AVONEX [Suspect]
     Indication: MULTIPLE SCLEROSIS
     Dosage: 30 UG; IM; 15 UG; IM; 30 UG;QW;IM
     Route: 030
     Dates: start: 20041018
  4. AVONEX [Suspect]
     Indication: MULTIPLE SCLEROSIS
     Dosage: 30 UG; QW; IM
     Route: 030
     Dates: start: 20041001
  5. OXYCONTIN [Concomitant]
  6. NEXIUM [Concomitant]
  7. FLOMAX [Concomitant]
  8. BENTYL [Concomitant]
  9. PRAVACHOL [Concomitant]
  10. DULCOLAX [Concomitant]
  11. CELEBREX [Concomitant]
  12. VALTREX [Concomitant]

REACTIONS (4)
  - ARTHRALGIA [None]
  - INTERVERTEBRAL DISC PROTRUSION [None]
  - SPINAL CORD DISORDER [None]
  - SPINAL OSTEOARTHRITIS [None]
